FAERS Safety Report 12606544 (Version 1)
Quarter: 2016Q3

REPORT INFORMATION
  Report Type: Spontaneous
  Country: None (occurrence: None)
  Receive Date: 20160728
  Receipt Date: 20160728
  Transmission Date: 20161109
  Serious: Yes (Hospitalization)
  Sender: FDA-Public Use
  Company Number: None

PATIENT
  Age: 82 Year
  Sex: Female

DRUGS (1)
  1. METRONIDAZOLE. [Suspect]
     Active Substance: METRONIDAZOLE
     Indication: CLOSTRIDIUM DIFFICILE INFECTION
     Route: 048
     Dates: start: 20160626, end: 20160628

REACTIONS (6)
  - Speech disorder [None]
  - Nervous system disorder [None]
  - Mental status changes [None]
  - Monoparesis [None]
  - Neurotoxicity [None]
  - Partial seizures [None]

NARRATIVE: CASE EVENT DATE: 20160628
